FAERS Safety Report 12724188 (Version 3)
Quarter: 2016Q4

REPORT INFORMATION
  Report Type: Spontaneous
  Country: US (occurrence: US)
  Receive Date: 20160908
  Receipt Date: 20161205
  Transmission Date: 20170207
  Serious: Yes (Hospitalization)
  Sender: FDA-Public Use
  Company Number: US-ASTRAZENECA-2016SE93684

PATIENT
  Age: 848 Month
  Sex: Female
  Weight: 64.4 kg

DRUGS (6)
  1. LISINOPRIL. [Suspect]
     Active Substance: LISINOPRIL
     Indication: BLOOD PRESSURE ABNORMAL
     Route: 048
  2. OXYGEN. [Concomitant]
     Active Substance: OXYGEN
     Indication: DYSPNOEA
     Dosage: 2L ALL NIGHT AND INTERMITTENLY THROUGHOUT THE DAY
  3. TUDORZA PRESSAIR [Suspect]
     Active Substance: ACLIDINIUM BROMIDE
     Indication: DYSPNOEA
     Dosage: 400 UG, ONE PUFF ONCE PER DAY
     Route: 055
     Dates: start: 201510
  4. DIAZAPAM [Concomitant]
     Route: 048
  5. ALBUTEROL. [Concomitant]
     Active Substance: ALBUTEROL
     Indication: DYSPNOEA
     Dosage: 1-2 PUFFS AS NEEDED
  6. PROAIR HFA [Concomitant]
     Active Substance: ALBUTEROL SULFATE
     Dosage: 1 PUFF DAILY

REACTIONS (3)
  - Breast cancer [Not Recovered/Not Resolved]
  - Device malfunction [Unknown]
  - Intentional product misuse [Unknown]

NARRATIVE: CASE EVENT DATE: 201606
